FAERS Safety Report 8401609-0 (Version None)
Quarter: 2012Q2

REPORT INFORMATION
  Report Type: 
  Country: None (occurrence: None)
  Receive Date: 20120529
  Receipt Date: 19920427
  Transmission Date: 20120825
  Serious: Yes (Other)
  Sender: FDA-Public Use
  Company Number: 003880

PATIENT
  Age: 87 Year
  Sex: Male

DRUGS (6)
  1. TEPRENONE (TEPRENONE) [Concomitant]
  2. FLUNITRAZEPAM (FLUNITRAZEPAM) [Concomitant]
  3. LIMAPROST ALFADEX (LIMAPROST ALFADEX) [Concomitant]
  4. PLETAL [Suspect]
     Dosage: 150 MG, DAILY DOSE, ORAL
     Route: 048
     Dates: start: 19910417, end: 19920312
  5. PLETAL [Suspect]
     Dosage: 150 MG, DAILY DOSE, ORAL
     Route: 048
     Dates: start: 19900103, end: 19901211
  6. MECOBALAMIN (MECOBALAMIN) [Concomitant]

REACTIONS (3)
  - VISUAL ACUITY REDUCED [None]
  - RETINAL HAEMORRHAGE [None]
  - PHOTOPSIA [None]
